FAERS Safety Report 4615051-1 (Version None)
Quarter: 2005Q1

REPORT INFORMATION
  Report Type: 
  Country: None (occurrence: None)
  Receive Date: 20050322
  Receipt Date: 20050309
  Transmission Date: 20050727
  Serious: Yes (Hospitalization)
  Sender: FDA-Public Use
  Company Number: US-GLAXOSMITHKLINE-A0548981A

PATIENT
  Age: 82 Year
  Sex: Female
  Weight: 56 kg

DRUGS (3)
  1. ECOTRIN [Suspect]
     Indication: PROPHYLAXIS
     Dosage: 81MG PER DAY
     Route: 048
     Dates: start: 20010415, end: 20040430
  2. ECOTRIN [Suspect]
     Dosage: 81MG TWICE PER DAY
     Route: 048
     Dates: start: 20041201
  3. SYNTHROID [Concomitant]

REACTIONS (2)
  - BRONCHIECTASIS [None]
  - HAEMOPTYSIS [None]
